FAERS Safety Report 21902559 (Version 1)
Quarter: 2023Q1

REPORT INFORMATION
  Report Type: Other
  Country: US (occurrence: None)
  Receive Date: 20230124
  Receipt Date: 20230124
  Transmission Date: 20230418
  Serious: No
  Sender: FDA-Public Use
  Company Number: US-ROCHE-3270021

PATIENT
  Age: 60 Year
  Sex: Female

DRUGS (2)
  1. OCREVUS [Suspect]
     Active Substance: OCRELIZUMAB
     Indication: Multiple sclerosis
     Dosage: INFUSE 300MG DAY 1 + DAY 15, SINGLE USE VIAL
     Route: 065
     Dates: start: 20220126
  2. OCREVUS [Suspect]
     Active Substance: OCRELIZUMAB
     Dosage: INFUSE 300MG DAY 1 + DAY 15, SINGLE USE VIAL
     Route: 065
     Dates: start: 20220209

REACTIONS (1)
  - Hepatitis B virus test positive [Unknown]
